FAERS Safety Report 6127999-X (Version None)
Quarter: 2009Q1

REPORT INFORMATION
  Report Type: 
  Country: None (occurrence: None)
  Receive Date: 20090323
  Receipt Date: 20090311
  Transmission Date: 20090719
  Serious: Yes (Other)
  Sender: FDA-Public Use
  Company Number: DK-ELI_LILLY_AND_COMPANY-DK200903002897

PATIENT
  Sex: Female

DRUGS (2)
  1. CIALIS [Suspect]
     Indication: CHILLBLAINS
     Dosage: 20 MG, DAILY (1/D)
     Route: 065
  2. CIALIS [Suspect]
     Dosage: 10 MG, OTHER (EVERY THIRD DAY)
     Route: 065

REACTIONS (1)
  - BLINDNESS TRANSIENT [None]
